FAERS Safety Report 6881386-5 (Version None)
Quarter: 2010Q3

REPORT INFORMATION
  Report Type: 
  Country: None (occurrence: None)
  Receive Date: 20100728
  Receipt Date: 20100728
  Transmission Date: 20110219
  Serious: Yes (Hospitalization)
  Sender: FDA-Public Use
  Company Number: None

PATIENT
  Sex: Male
  Weight: 76.8 kg

DRUGS (2)
  1. CISPLATIN [Suspect]
     Dosage: 456 MG
  2. CAMPTOSAR [Suspect]
     Dosage: 760 MG

REACTIONS (3)
  - ASTHENIA [None]
  - DEHYDRATION [None]
  - OESOPHAGEAL CARCINOMA [None]
